FAERS Safety Report 10078473 (Version 2)
Quarter: 2014Q2

REPORT INFORMATION
  Report Type: Spontaneous
  Country: US (occurrence: None)
  Receive Date: 20140411
  Receipt Date: 20140430
  Transmission Date: 20141212
  Serious: Yes (Other)
  Sender: FDA-Public Use
  Company Number: ADR-2014-00573

PATIENT
  Age: 69 Year
  Sex: Male

DRUGS (5)
  1. BACLOFEN [Suspect]
     Indication: PAIN
  2. FENTANYL [Suspect]
  3. HYDROMORPHONE [Suspect]
  4. BUPIVACAINE [Suspect]
  5. MORPHINE [Suspect]

REACTIONS (6)
  - Weight decreased [None]
  - Excessive skin [None]
  - Device expulsion [None]
  - Decubitus ulcer [None]
  - Device extrusion [None]
  - Device dislocation [None]
